FAERS Safety Report 19280451 (Version 2)
Quarter: 2021Q2

REPORT INFORMATION
  Report Type: Spontaneous
  Country: CN (occurrence: CN)
  Receive Date: 20210521
  Receipt Date: 20210617
  Transmission Date: 20210717
  Serious: No
  Sender: FDA-Public Use
  Company Number: CN-LUPIN PHARMACEUTICALS INC.-2021-07547

PATIENT
  Age: 33 Year
  Sex: Female

DRUGS (2)
  1. METHYLPREDNISOLONE. [Suspect]
     Active Substance: METHYLPREDNISOLONE
     Indication: DEAFNESS NEUROSENSORY
     Dosage: 0.4 MILLILITER, FIVE TIMES, ONCE EVERY 2 DAYS
  2. LIDOCAINE. [Suspect]
     Active Substance: LIDOCAINE
     Indication: DEAFNESS NEUROSENSORY
     Dosage: 0.1 MILLILITER, FIVE TIMES, ONCE EVERY 2 DAYS

REACTIONS (1)
  - Exposure during pregnancy [Unknown]
